FAERS Safety Report 17270898 (Version 1)
Quarter: 2020Q1

REPORT INFORMATION
  Report Type: Spontaneous
  Country: IT (occurrence: IT)
  Receive Date: 20200115
  Receipt Date: 20200115
  Transmission Date: 20200409
  Serious: Yes (Other)
  Sender: FDA-Public Use
  Company Number: IT-SUN PHARMACEUTICAL INDUSTRIES LTD-2019RR-233066

PATIENT
  Age: 72 Year
  Sex: Male
  Weight: 59 kg

DRUGS (4)
  1. LEVOFOLENE 100 MG POLVERE PER SOLUZIONE INIETTABILE [Suspect]
     Active Substance: LEVOLEUCOVORIN CALCIUM
     Indication: GASTRIC CANCER
     Dosage: 336 MILLIGRAMS, CYCLICAL
     Route: 042
     Dates: start: 20191015
  2. FLUOROURACILE FLUOROURACILE AHCL 50 MG/ML, SOLUZIONE PER INIEZIONE O I [Suspect]
     Active Substance: FLUOROURACIL
     Dosage: 672 MILLIGRAMS, CYCLICAL
     Route: 012
     Dates: start: 20191015
  3. FLUOROURACILE FLUOROURACILE AHCL 50 MG/ML, SOLUZIONE PER INIEZIONE O I [Suspect]
     Active Substance: FLUOROURACIL
     Indication: GASTRIC CANCER
     Dosage: 2.02 GRAMS, CYCLICAL
     Route: 042
     Dates: start: 20191015
  4. OXALIPLATINO SUN 5 MG/ML, CONCENTRATO PER SOLUZIONE PER INFUSIONE [Suspect]
     Active Substance: OXALIPLATIN
     Indication: GASTRIC CANCER
     Dosage: 142.8 MILLIGRAMS, CYCLICAL
     Route: 042
     Dates: start: 20191015

REACTIONS (1)
  - Bone marrow toxicity [Not Recovered/Not Resolved]

NARRATIVE: CASE EVENT DATE: 20191209
